FAERS Safety Report 14216475 (Version 1)
Quarter: 2017Q4

REPORT INFORMATION
  Report Type: Spontaneous
  Country: AU (occurrence: AU)
  Receive Date: 20171122
  Receipt Date: 20171122
  Transmission Date: 20180321
  Serious: Yes (Life-Threatening, Hospitalization)
  Sender: FDA-Public Use
  Company Number: PHHY2017AU172037

PATIENT
  Age: 20 Year
  Sex: Male

DRUGS (1)
  1. BUPRENORPHINE. [Suspect]
     Active Substance: BUPRENORPHINE
     Indication: DRUG DEPENDENCE
     Route: 042

REACTIONS (7)
  - Jaundice [Unknown]
  - Multiple organ dysfunction syndrome [Unknown]
  - Incorrect route of drug administration [Unknown]
  - Product use in unapproved indication [Unknown]
  - Vomiting [Unknown]
  - Nausea [Unknown]
  - Acute hepatic failure [Recovering/Resolving]
